FAERS Safety Report 5651723-8 (Version None)
Quarter: 2008Q1

REPORT INFORMATION
  Report Type: 
  Country: None (occurrence: None)
  Receive Date: 20080304
  Receipt Date: 20080222
  Transmission Date: 20080703
  Serious: Yes (Death)
  Sender: FDA-Public Use
  Company Number: L08-USA-00315-74

PATIENT
  Age: 85 Year
  Sex: Male

DRUGS (2)
  1. THEOPHYLLINE [Suspect]
  2. EPHEDRINE SUL CAP [Suspect]

REACTIONS (2)
  - COMPLETED SUICIDE [None]
  - MULTIPLE DRUG OVERDOSE [None]
